FAERS Safety Report 11170797 (Version 1)
Quarter: 2015Q2

REPORT INFORMATION
  Report Type: Spontaneous
  Country: US (occurrence: None)
  Receive Date: 20150605
  Receipt Date: 20150605
  Transmission Date: 20150821
  Serious: No
  Sender: FDA-Public Use
  Company Number: None

PATIENT
  Age: 58 Year
  Sex: Female
  Weight: 67.59 kg

DRUGS (4)
  1. ESOMEPRAZOLE 40MG [Suspect]
     Active Substance: ESOMEPRAZOLE
  2. LACTULOSE. [Concomitant]
     Active Substance: LACTULOSE
  3. NEXIUM [Concomitant]
     Active Substance: ESOMEPRAZOLE MAGNESIUM
     Dates: start: 20130210
  4. ZOLPIDEM [Concomitant]
     Active Substance: ZOLPIDEM\ZOLPIDEM TARTRATE
     Dates: start: 201309

REACTIONS (3)
  - Product substitution issue [None]
  - Gastrooesophageal reflux disease [None]
  - Drug ineffective [None]
